FAERS Safety Report 10572296 (Version 4)
Quarter: 2015Q1

REPORT INFORMATION
  Report Type: Spontaneous
  Country: FR (occurrence: FR)
  Receive Date: 20141109
  Receipt Date: 20150113
  Transmission Date: 20150720
  Serious: Yes (Hospitalization)
  Sender: FDA-Public Use
  Company Number: FR-PFIZER INC-2014306328

PATIENT
  Age: 34 Year
  Sex: Female

DRUGS (4)
  1. ARGATROBAN. [Concomitant]
     Active Substance: ARGATROBAN
     Dosage: UNK
     Route: 041
     Dates: start: 20140924
  2. ORGARAN [Suspect]
     Active Substance: DANAPAROID SODIUM
     Dosage: 750 IU, UNK
     Route: 041
     Dates: start: 20140917, end: 20140923
  3. ARGATROBAN. [Concomitant]
     Active Substance: ARGATROBAN
     Indication: HEPARIN-INDUCED THROMBOCYTOPENIA
     Dosage: 18 MG, 1X/DAY
     Route: 041
     Dates: start: 20140915, end: 20140917
  4. HEPARIN SODIUM. [Suspect]
     Active Substance: HEPARIN SODIUM
     Dosage: 23750 IU, 1X/DAY
     Route: 041
     Dates: start: 20140822, end: 20140914

REACTIONS (1)
  - Thrombocytopenia [Not Recovered/Not Resolved]

NARRATIVE: CASE EVENT DATE: 20140910
